FAERS Safety Report 16312399 (Version 8)
Quarter: 2020Q4

REPORT INFORMATION
  Report Type: Spontaneous
  Country: US (occurrence: US)
  Receive Date: 20190515
  Receipt Date: 20201201
  Transmission Date: 20210113
  Serious: No
  Sender: FDA-Public Use
  Company Number: US-BIOGEN-2019BI00737410

PATIENT
  Age: 49 Year
  Sex: Female

DRUGS (3)
  1. BACLOFEN. [Concomitant]
     Active Substance: BACLOFEN
     Indication: MUSCLE SPASTICITY
     Route: 065
  2. TYSABRI [Suspect]
     Active Substance: NATALIZUMAB
     Indication: MULTIPLE SCLEROSIS
     Dosage: INFUSED OVER 1 HOUR
     Route: 042
     Dates: start: 20190326
  3. GABAPENTIN. [Concomitant]
     Active Substance: GABAPENTIN
     Indication: NERVOUSNESS
     Route: 065

REACTIONS (25)
  - Chromaturia [Recovered/Resolved]
  - Abdominal distension [Unknown]
  - Narcolepsy [Unknown]
  - Malaise [Unknown]
  - Vaginal infection [Unknown]
  - Palpitations [Unknown]
  - Dehydration [Not Recovered/Not Resolved]
  - Pain [Not Recovered/Not Resolved]
  - Dysuria [Unknown]
  - Anxiety [Not Recovered/Not Resolved]
  - Neuralgia [Not Recovered/Not Resolved]
  - Skin discolouration [Unknown]
  - Fatigue [Not Recovered/Not Resolved]
  - Headache [Unknown]
  - Constipation [Unknown]
  - Feeling abnormal [Unknown]
  - Neck pain [Unknown]
  - Cognitive disorder [Not Recovered/Not Resolved]
  - Gastrointestinal disorder [Unknown]
  - Multiple sclerosis relapse [Unknown]
  - Hypertension [Unknown]
  - Breath odour [Unknown]
  - Negative thoughts [Recovered/Resolved]
  - Ear pain [Unknown]
  - Asthenia [Not Recovered/Not Resolved]

NARRATIVE: CASE EVENT DATE: 2019
